FAERS Safety Report 14333540 (Version 4)
Quarter: 2018Q1

REPORT INFORMATION
  Report Type: Spontaneous
  Country: DE (occurrence: DE)
  Receive Date: 20171228
  Receipt Date: 20180319
  Transmission Date: 20180509
  Serious: Yes (Hospitalization, Other)
  Sender: FDA-Public Use
  Company Number: DE-SHIRE-DE201735366

PATIENT

DRUGS (3)
  1. 476 (MESALAZINE/MESALAMINE) [Suspect]
     Active Substance: MESALAMINE
     Indication: COLITIS
     Dosage: UNK
     Route: 065
     Dates: start: 20171101, end: 20171101
  2. CLAVERSAL [Suspect]
     Active Substance: MESALAMINE
     Indication: COLITIS
     Dosage: 1 DF, BID
     Route: 054
     Dates: start: 201711, end: 201711
  3. COLIBIOGEN                         /01127901/ [Concomitant]
     Indication: COLITIS
     Dosage: UNK
     Dates: start: 201711

REACTIONS (10)
  - Arrhythmia [Recovered/Resolved]
  - Nuchal rigidity [Recovered/Resolved]
  - Hyperhidrosis [Recovered/Resolved]
  - Chills [Recovered/Resolved]
  - Arthralgia [Recovered/Resolved]
  - Sepsis [Recovered/Resolved]
  - Influenza like illness [Recovered/Resolved]
  - Vomiting [Recovering/Resolving]
  - Hepatic enzyme increased [Recovering/Resolving]
  - Pyrexia [Recovering/Resolving]

NARRATIVE: CASE EVENT DATE: 201711
